FAERS Safety Report 14832046 (Version 2)
Quarter: 2018Q3

REPORT INFORMATION
  Report Type: Spontaneous
  Country: JP (occurrence: JP)
  Receive Date: 20180501
  Receipt Date: 20180712
  Transmission Date: 20181010
  Serious: Yes (Death, Hospitalization, Other)
  Sender: FDA-Public Use
  Company Number: JP-MYLANLABS-2018M1028071

PATIENT
  Age: 66 Year
  Sex: Male
  Weight: 58 kg

DRUGS (10)
  1. DEXAMETHASONE. [Concomitant]
     Active Substance: DEXAMETHASONE
     Indication: ANTIEMETIC SUPPORTIVE CARE
     Dosage: 9.9 MG, CYCLE
     Route: 041
     Dates: start: 20180222
  2. DECADRON [Concomitant]
     Active Substance: DEXAMETHASONE
     Indication: ANTIEMETIC SUPPORTIVE CARE
     Dosage: 8 MG, UNK
     Route: 048
     Dates: start: 20180328, end: 20180419
  3. CAMSHIA [Concomitant]
     Active Substance: AMLODIPINE BESYLATE\CANDESARTAN CILEXETIL
     Indication: HYPERTENSION
     Dosage: UNK UNK, QD
     Route: 048
  4. CALONAL [Concomitant]
     Active Substance: ACETAMINOPHEN
     Indication: PAIN
     Dosage: 300 MG, TID
     Route: 048
     Dates: start: 20180315, end: 20180328
  5. CISPLATIN. [Concomitant]
     Active Substance: CISPLATIN
     Indication: NON-SMALL CELL LUNG CANCER
     Dosage: 130 MG, UNK
     Route: 041
     Dates: start: 20180222, end: 20180222
  6. GRANISETRON [Concomitant]
     Active Substance: GRANISETRON
     Indication: ANTIEMETIC SUPPORTIVE CARE
     Dosage: 3 MG, CYCLE
     Route: 041
     Dates: start: 20180222
  7. ROZEUS [Suspect]
     Active Substance: VINORELBINE TARTRATE
     Indication: NON-SMALL CELL LUNG CANCER
     Dosage: UNK
     Route: 041
     Dates: start: 20180222
  8. LEUCON                             /00300201/ [Concomitant]
     Active Substance: ADENINE
     Indication: WHITE BLOOD CELL COUNT DECREASED
     Dosage: 20 MG, TID
     Route: 048
     Dates: start: 20180412, end: 20180501
  9. CARBOPLATIN INJ. 50MG ^NK^ [Suspect]
     Active Substance: CARBOPLATIN
     Indication: NON-SMALL CELL LUNG CANCER
     Dosage: 250 MG, CYCLE
     Route: 041
     Dates: start: 20180327
  10. LYRICA [Concomitant]
     Active Substance: PREGABALIN
     Indication: PAIN
     Dosage: 75 MG, QD
     Route: 048
     Dates: start: 20180315, end: 20180328

REACTIONS (4)
  - Haemolytic anaemia [Unknown]
  - Pancytopenia [Fatal]
  - Disseminated intravascular coagulation [Fatal]
  - Febrile neutropenia [Fatal]

NARRATIVE: CASE EVENT DATE: 20180424
